FAERS Safety Report 19197089 (Version 1)
Quarter: 2021Q2

REPORT INFORMATION
  Report Type: Spontaneous
  Country: US (occurrence: US)
  Receive Date: 20210430
  Receipt Date: 20210430
  Transmission Date: 20210717
  Serious: No
  Sender: FDA-Public Use
  Company Number: US-SA-2021SA138538

PATIENT
  Age: 9 Year
  Sex: Male

DRUGS (1)
  1. DUPIXENT [Suspect]
     Active Substance: DUPILUMAB
     Dosage: UNK, 200MG/1.14ML STRENGTH, FREQUENCY OTHER
     Route: 058
     Dates: start: 202101

REACTIONS (2)
  - Hordeolum [Unknown]
  - Eye infection [Unknown]

NARRATIVE: CASE EVENT DATE: 2021
